FAERS Safety Report 20795381 (Version 1)
Quarter: 2022Q2

REPORT INFORMATION
  Report Type: Spontaneous
  Country: BE (occurrence: BE)
  Receive Date: 20220506
  Receipt Date: 20220506
  Transmission Date: 20220721
  Serious: Yes (Life-Threatening, Hospitalization, Other)
  Sender: FDA-Public Use
  Company Number: BE-FRESENIUS KABI-FK202204360

PATIENT
  Age: 55 Year
  Sex: Female
  Weight: 76.6 kg

DRUGS (6)
  1. METHYLPREDNISOLONE SODIUM SUCCINATE [Suspect]
     Active Substance: METHYLPREDNISOLONE SODIUM SUCCINATE
     Dosage: 200 MG/40 ML
     Route: 042
     Dates: start: 20211123
  2. PALONOSETRON [Suspect]
     Active Substance: PALONOSETRON
     Dosage: 250 UG (200 MG/40 ML)
     Route: 042
     Dates: start: 20211123
  3. FLUOROURACIL [Suspect]
     Active Substance: FLUOROURACIL
     Dosage: 775 MG (200 MG/40 ML)
     Route: 042
     Dates: start: 20211123
  4. FLUOROURACIL [Suspect]
     Active Substance: FLUOROURACIL
     Dosage: 775 MG (200 MG/40 ML)
     Route: 042
     Dates: start: 20211123
  5. LEUCOVORIN CALCIUM [Suspect]
     Active Substance: LEUCOVORIN CALCIUM
     Dosage: 800 MG (200 MG/40 ML)
     Route: 042
     Dates: start: 20211123
  6. OXALIPLATIN [Suspect]
     Active Substance: OXALIPLATIN
     Dosage: 175 MG (200 MG/40 ML)
     Route: 042
     Dates: start: 20211123, end: 20220308

REACTIONS (10)
  - Hypersensitivity [Recovering/Resolving]
  - Swollen tongue [Recovering/Resolving]
  - Presyncope [Recovering/Resolving]
  - Gait disturbance [Unknown]
  - Dysarthria [Recovering/Resolving]
  - Joint stiffness [Recovering/Resolving]
  - Palpitations [Recovering/Resolving]
  - Pharyngeal dyskinesia [Unknown]
  - Neuropathy peripheral [Unknown]
  - Dyskinesia [Unknown]
